FAERS Safety Report 10640029 (Version 1)
Quarter: 2014Q4

REPORT INFORMATION
  Report Type: Spontaneous
  Country: US (occurrence: None)
  Receive Date: 20141208
  Receipt Date: 20141208
  Transmission Date: 20150529
  Serious: Yes (Life-Threatening, Hospitalization)
  Sender: FDA-Public Use
  Company Number: None

PATIENT
  Age: 68 Year
  Sex: Female
  Weight: 56.7 kg

DRUGS (11)
  1. LISINOPRIL. [Concomitant]
     Active Substance: LISINOPRIL
  2. NITRO [Concomitant]
     Active Substance: NITROGLYCERIN
  3. TYLENOL ARTHRITIS STRENGTH [Concomitant]
  4. DILAUDID [Suspect]
     Active Substance: HYDROMORPHONE HYDROCHLORIDE
     Indication: DYSPEPSIA
     Dosage: THROUGH THE IV LINE
     Route: 042
     Dates: start: 20141120, end: 20141120
  5. 81 ASPIRIN [Concomitant]
  6. CALCIUM CARBONATE. [Concomitant]
     Active Substance: CALCIUM CARBONATE
  7. FUROSEMIDE. [Concomitant]
     Active Substance: FUROSEMIDE
  8. VITAMINS [Concomitant]
     Active Substance: VITAMINS
  9. ZANTAC [Concomitant]
     Active Substance: RANITIDINE HYDROCHLORIDE
  10. D3 [Concomitant]
     Active Substance: 25-HYDROXYCHOLECALCIFEROL, 5-TRANS-
  11. CARVIDELOL [Concomitant]

REACTIONS (5)
  - Headache [None]
  - Nausea [None]
  - Retching [None]
  - Syncope [None]
  - Apparent death [None]

NARRATIVE: CASE EVENT DATE: 20141120
